FAERS Safety Report 13287959 (Version 2)
Quarter: 2017Q1

REPORT INFORMATION
  Report Type: Report from Study
  Country: US (occurrence: US)
  Receive Date: 20170302
  Receipt Date: 20170310
  Transmission Date: 20170428
  Serious: Yes (Other)
  Sender: FDA-Public Use
  Company Number: US-BAYER-2017-034867

PATIENT
  Age: 76 Year
  Sex: Male

DRUGS (1)
  1. STIVARGA [Suspect]
     Active Substance: REGORAFENIB
     Indication: COLORECTAL CANCER
     Dosage: 160 MG, QD
     Route: 048
     Dates: start: 20170209, end: 20170217

REACTIONS (18)
  - Pain in extremity [None]
  - Asthenia [Not Recovered/Not Resolved]
  - Urinary incontinence [None]
  - Tremor [None]
  - Peripheral swelling [Not Recovered/Not Resolved]
  - Limb discomfort [None]
  - Decreased appetite [None]
  - Dysgeusia [None]
  - Infection [None]
  - Asthenia [None]
  - Mental status changes [None]
  - Blood pressure increased [None]
  - Fatigue [None]
  - Musculoskeletal disorder [None]
  - Blood pressure systolic increased [None]
  - Pyrexia [None]
  - Micturition urgency [None]
  - Weight decreased [None]

NARRATIVE: CASE EVENT DATE: 201702
